FAERS Safety Report 5043672-3 (Version None)
Quarter: 2006Q2

REPORT INFORMATION
  Report Type: 
  Country: None (occurrence: None)
  Receive Date: 20060601
  Receipt Date: 20060128
  Transmission Date: 20061013
  Serious: No
  Sender: FDA-Public Use
  Company Number: 2006PV007752

PATIENT
  Age: 66 Year
  Sex: Female
  Weight: 127.0072 kg

DRUGS (1)
  1. BYETTA [Suspect]
     Indication: DIABETES MELLITUS NON-INSULIN-DEPENDENT
     Dosage: 5 MCG; BID; SC
     Route: 058
     Dates: start: 20060119

REACTIONS (3)
  - HEADACHE [None]
  - PAROTITIS [None]
  - SWELLING FACE [None]
